FAERS Safety Report 9292897 (Version 1)
Quarter: 2013Q2

REPORT INFORMATION
  Report Type: Spontaneous
  Country: US (occurrence: None)
  Receive Date: 20130515
  Receipt Date: 20130515
  Transmission Date: 20140414
  Serious: Yes (Hospitalization, Disabling, Other)
  Sender: FDA-Public Use
  Company Number: None

PATIENT
  Sex: Female
  Weight: 104.33 kg

DRUGS (2)
  1. SINGULAIR [Suspect]
     Indication: ASTHMA
     Route: 048
     Dates: start: 2006, end: 2013
  2. MONTELUKAST [Suspect]

REACTIONS (22)
  - Palpitations [None]
  - Dyspepsia [None]
  - Dyspepsia [None]
  - Nasal congestion [None]
  - Agitation [None]
  - Aggression [None]
  - Hostility [None]
  - Abnormal dreams [None]
  - Depression [None]
  - Disorientation [None]
  - Confusional state [None]
  - Irritability [None]
  - Tremor [None]
  - Dyskinesia [None]
  - Somnambulism [None]
  - Insomnia [None]
  - Hallucination [None]
  - Suicidal ideation [None]
  - Screaming [None]
  - Fall [None]
  - Multiple injuries [None]
  - Head injury [None]
